FAERS Safety Report 12712789 (Version 2)
Quarter: 2016Q3

REPORT INFORMATION
  Report Type: Report from Study
  Country: US (occurrence: US)
  Receive Date: 20160902
  Receipt Date: 20160927
  Transmission Date: 20161109
  Serious: Yes (Hospitalization, Other)
  Sender: FDA-Public Use
  Company Number: US-ABBVIE-16K-163-1713358-00

PATIENT
  Age: 63 Year
  Sex: Female

DRUGS (2)
  1. HUMIRA [Suspect]
     Active Substance: ADALIMUMAB
     Route: 058
     Dates: start: 201607
  2. HUMIRA [Suspect]
     Active Substance: ADALIMUMAB
     Indication: RHEUMATOID ARTHRITIS
     Route: 058
     Dates: start: 2008, end: 2016

REACTIONS (10)
  - Pain [Unknown]
  - Joint swelling [Unknown]
  - Spinal operation [Unknown]
  - Cerebrospinal fluid leakage [Recovered/Resolved]
  - Post procedural complication [Unknown]
  - Diabetes mellitus [Unknown]
  - Gait disturbance [Unknown]
  - Arthralgia [Unknown]
  - Activities of daily living impaired [Unknown]
  - Hyperhidrosis [Unknown]

NARRATIVE: CASE EVENT DATE: 201603
